FAERS Safety Report 19779376 (Version 2)
Quarter: 2021Q3

REPORT INFORMATION
  Report Type: Spontaneous
  Country: KR (occurrence: KR)
  Receive Date: 20210902
  Receipt Date: 20210907
  Transmission Date: 20211014
  Serious: Yes (Other)
  Sender: FDA-Public Use
  Company Number: KR-SEATTLE GENETICS-2021SGN04529

PATIENT
  Age: 28 Year
  Sex: Female

DRUGS (7)
  1. ADRIAMYCIN [Suspect]
     Active Substance: DOXORUBICIN HYDROCHLORIDE
     Indication: HODGKIN^S DISEASE
     Dosage: 25 MILLIGRAM/SQ. METER
     Route: 065
     Dates: start: 20210410, end: 20210604
  2. ADRIAMYCIN [Suspect]
     Active Substance: DOXORUBICIN HYDROCHLORIDE
     Dosage: UNK
     Route: 065
  3. VINBLASTINE [Suspect]
     Active Substance: VINBLASTINE
     Indication: HODGKIN^S DISEASE
     Dosage: 6 MILLIGRAM/SQ. METER
     Route: 065
     Dates: start: 20210410, end: 20210604
  4. VINBLASTINE [Suspect]
     Active Substance: VINBLASTINE
     Dosage: UNK
     Route: 065
  5. ADCETRIS [Suspect]
     Active Substance: BRENTUXIMAB VEDOTIN
     Indication: HODGKIN^S DISEASE
     Dosage: 1.2 MILLIGRAM/KILOGRAM
     Route: 065
     Dates: start: 20210410
  6. DACARBAZINE. [Suspect]
     Active Substance: DACARBAZINE
     Indication: HODGKIN^S DISEASE
     Dosage: 375 MILLIGRAM/SQ. METER
     Route: 065
     Dates: start: 20210410, end: 20210604
  7. DACARBAZINE. [Suspect]
     Active Substance: DACARBAZINE
     Dosage: UNK
     Route: 065

REACTIONS (1)
  - Fungal oesophagitis [Unknown]
